FAERS Safety Report 15545802 (Version 2)
Quarter: 2019Q1

REPORT INFORMATION
  Report Type: Spontaneous
  Country: US (occurrence: US)
  Receive Date: 20181024
  Receipt Date: 20190311
  Transmission Date: 20190417
  Serious: Yes (Death, Other)
  Sender: FDA-Public Use
  Company Number: US-PFIZER INC-2018432512

PATIENT
  Age: 74 Year
  Sex: Male
  Weight: 77 kg

DRUGS (5)
  1. ASPIRIN [ACETYLSALICYLIC ACID] [Concomitant]
     Active Substance: ASPIRIN
     Indication: CARDIAC DISORDER
     Dosage: 81 MG, 1X/DAY
     Route: 048
  2. PLAVIX [Concomitant]
     Active Substance: CLOPIDOGREL BISULFATE
     Indication: CARDIAC DISORDER
     Dosage: 75 MG, 1X/DAY
     Route: 048
  3. METOPROLOL. [Concomitant]
     Active Substance: METOPROLOL
     Indication: BLOOD PRESSURE ABNORMAL
     Dosage: UNK
  4. LYRICA [Suspect]
     Active Substance: PREGABALIN
     Indication: NEUROPATHY PERIPHERAL
     Dosage: UNK
  5. TOUJEO [Concomitant]
     Active Substance: INSULIN GLARGINE
     Indication: DIABETES MELLITUS
     Dosage: 20 IU, 1X/DAY [EVERY MORNING INJECTION]

REACTIONS (2)
  - Product use in unapproved indication [Unknown]
  - Myocardial infarction [Fatal]

NARRATIVE: CASE EVENT DATE: 20180806
